FAERS Safety Report 7908786-6 (Version None)
Quarter: 2011Q4

REPORT INFORMATION
  Report Type: 
  Country: None (occurrence: None)
  Receive Date: 20111111
  Receipt Date: 20111108
  Transmission Date: 20120403
  Serious: No
  Sender: FDA-Public Use
  Company Number: US-PFIZER INC-2011275039

PATIENT
  Age: 55 Year
  Sex: Male
  Weight: 76.19 kg

DRUGS (9)
  1. LYRICA [Suspect]
     Indication: HYPOAESTHESIA
  2. SOMA [Concomitant]
     Indication: MUSCLE DISORDER
     Dosage: 350 MG, UNK
     Route: 048
  3. LYRICA [Suspect]
     Indication: PAIN IN EXTREMITY
     Dosage: 25 MG, DAILY
     Dates: start: 20111107
  4. MORPHINE [Concomitant]
     Indication: BACK DISORDER
     Dosage: 30 MG, 10X/DAY
  5. VITAMIN TAB [Concomitant]
     Dosage: UNK
  6. MORPHINE [Concomitant]
     Indication: HEADACHE
  7. XANAX [Concomitant]
     Dosage: UNK
     Route: 048
  8. DILAUDID [Concomitant]
     Indication: PAIN
     Dosage: 8 MG, UNK
     Route: 048
  9. LYRICA [Suspect]
     Indication: BURNING SENSATION

REACTIONS (2)
  - DIZZINESS [None]
  - ABDOMINAL PAIN UPPER [None]
